FAERS Safety Report 5422500-8 (Version None)
Quarter: 2007Q3

REPORT INFORMATION
  Report Type: 
  Country: None (occurrence: None)
  Receive Date: 20070820
  Receipt Date: 20070808
  Transmission Date: 20080115
  Serious: Yes (Hospitalization)
  Sender: FDA-Public Use
  Company Number: 2007SP016343

PATIENT
  Age: 42 Year
  Sex: Female

DRUGS (2)
  1. INTERFERON ALFA-2B RECOMBINANT [Suspect]
     Indication: HEPATITIS C
  2. REBETOL [Suspect]
     Indication: HEPATITIS C
     Dosage: ; PO
     Route: 048

REACTIONS (18)
  - ANGIOTENSIN CONVERTING ENZYME INCREASED [None]
  - BLOOD PROLACTIN INCREASED [None]
  - CEREBRAL SARCOIDOSIS [None]
  - CUSHING'S SYNDROME [None]
  - DECREASED APPETITE [None]
  - DEPRESSION [None]
  - DIZZINESS [None]
  - HYPERTHYROIDISM [None]
  - HYPOPHYSITIS [None]
  - HYPOPITUITARISM [None]
  - HYPOTHYROIDISM [None]
  - LABORATORY TEST ABNORMAL [None]
  - PITUITARY ENLARGEMENT [None]
  - SECONDARY ADRENOCORTICAL INSUFFICIENCY [None]
  - SECONDARY HYPOGONADISM [None]
  - TACHYCARDIA [None]
  - THYROIDITIS [None]
  - WEIGHT DECREASED [None]
